FAERS Safety Report 8804128 (Version 1)
Quarter: 2012Q4

REPORT INFORMATION
  Report Type: 
  Country: US (occurrence: US)
  Receive Date: 20120924
  Receipt Date: 20120924
  Transmission Date: 20130627
  Serious: No
  Sender: FDA-Public Use
  Company Number: US-009507513-1208USA008234

PATIENT
  Age: 61 Year
  Sex: Male

DRUGS (3)
  1. JANUVIA [Suspect]
     Dosage: 100 mg, UNK
  2. JANUVIA [Suspect]
     Dosage: 100 mg, UNK
  3. METFORMIN [Concomitant]
     Dosage: 2000 mg, UNK

REACTIONS (2)
  - Abdominal pain [Recovered/Resolved]
  - Abdominal pain [Recovered/Resolved]
